FAERS Safety Report 8619325-9 (Version None)
Quarter: 2012Q3

REPORT INFORMATION
  Report Type: 
  Country: None (occurrence: None)
  Receive Date: 20120824
  Receipt Date: 20120813
  Transmission Date: 20120928
  Serious: Yes (Other)
  Sender: FDA-Public Use
  Company Number: FR-PFIZER INC-2012197116

PATIENT
  Age: 51 Year
  Sex: Male
  Weight: 108 kg

DRUGS (4)
  1. ATORVASTATIN [Suspect]
     Indication: BLOOD CHOLESTEROL
     Dosage: 10 MG, UNK
     Route: 048
     Dates: start: 20120723, end: 20120805
  2. ASPIRIN [Concomitant]
     Indication: ANTICOAGULANT THERAPY
     Dosage: 75 MG, ONCE DAILY
     Route: 048
  3. DEPAKINE CHRONO [Concomitant]
     Indication: CONVULSIVE THRESHOLD LOWERED
     Dosage: 500 MG, TWICE DAILY
     Route: 048
  4. PROZAC [Concomitant]
     Indication: PROPHYLAXIS
     Dosage: 20 MG, ONCE DAILY
     Route: 048

REACTIONS (9)
  - MALAISE [None]
  - PRURITUS [None]
  - DIZZINESS [None]
  - DYSURIA [None]
  - BALANCE DISORDER [None]
  - PARAESTHESIA [None]
  - RENAL PAIN [None]
  - ANXIETY [None]
  - SYNCOPE [None]
